FAERS Safety Report 14675668 (Version 3)
Quarter: 2018Q4

REPORT INFORMATION
  Report Type: Spontaneous
  Country: US (occurrence: US)
  Receive Date: 20180323
  Receipt Date: 20181026
  Transmission Date: 20190204
  Serious: Yes (Other)
  Sender: FDA-Public Use
  Company Number: US-ASTRAZENECA-2018SE35826

PATIENT
  Age: 27977 Day
  Sex: Female
  Weight: 77.6 kg

DRUGS (108)
  1. ACTOS [Concomitant]
     Active Substance: PIOGLITAZONE HYDROCHLORIDE
     Indication: DIABETES MELLITUS
     Dates: start: 2002, end: 2010
  2. ACTOS [Concomitant]
     Active Substance: PIOGLITAZONE HYDROCHLORIDE
     Indication: DIABETES MELLITUS
     Route: 048
     Dates: start: 20080318
  3. ALLOPURINOL. [Concomitant]
     Active Substance: ALLOPURINOL
     Indication: GOUT
     Dates: start: 2006
  4. LIPITOR [Concomitant]
     Active Substance: ATORVASTATIN CALCIUM
  5. COZAAR [Concomitant]
     Active Substance: LOSARTAN POTASSIUM
  6. ZYMAR [Concomitant]
     Active Substance: GATIFLOXACIN
  7. NATEGLINIDE. [Concomitant]
     Active Substance: NATEGLINIDE
  8. NATEGLINIDE. [Concomitant]
     Active Substance: NATEGLINIDE
     Dosage: GENERIC: ESOMEPRAZOLE
     Route: 065
     Dates: start: 20151125, end: 2016
  9. CRESTOR [Concomitant]
     Active Substance: ROSUVASTATIN CALCIUM
     Dosage: GENERIC: ESOMEPRAZOLE
     Route: 065
     Dates: start: 20160106, end: 2016
  10. RENVELA [Concomitant]
     Active Substance: SEVELAMER CARBONATE
     Dosage: GENERIC: ESOMEPRAZOLE
     Route: 065
     Dates: start: 20160106, end: 2016
  11. LACTULOSE. [Concomitant]
     Active Substance: LACTULOSE
     Dosage: GENERIC: ESOMEPRAZOLE
     Route: 065
     Dates: start: 20160106, end: 2016
  12. PRILOSEC [Suspect]
     Active Substance: OMEPRAZOLE MAGNESIUM
     Indication: GASTROOESOPHAGEAL REFLUX DISEASE
     Route: 048
  13. TIAZAC [Concomitant]
     Active Substance: DILTIAZEM HYDROCHLORIDE
     Indication: CARDIAC FAILURE CONGESTIVE
     Dates: start: 2002, end: 2006
  14. CEPHALEXIN. [Concomitant]
     Active Substance: CEPHALEXIN
     Indication: INFECTION
     Dates: start: 2004
  15. PENTOXIFYLLINE. [Concomitant]
     Active Substance: PENTOXIFYLLINE
  16. HYDROCO [Concomitant]
  17. HYZAAR [Concomitant]
     Active Substance: HYDROCHLOROTHIAZIDE\LOSARTAN POTASSIUM
     Dosage: 100/25
     Route: 048
     Dates: start: 20080318
  18. IPRATROPIUM BROMIDE. [Concomitant]
     Active Substance: IPRATROPIUM BROMIDE
  19. JANUVIA [Concomitant]
     Active Substance: SITAGLIPTIN PHOSPHATE
     Dates: start: 20110417
  20. KLOR-CON [Concomitant]
     Active Substance: POTASSIUM CHLORIDE
  21. COLACE [Concomitant]
     Active Substance: DOCUSATE SODIUM
  22. NEXIUM [Suspect]
     Active Substance: ESOMEPRAZOLE MAGNESIUM
     Indication: GASTROOESOPHAGEAL REFLUX DISEASE
     Dosage: GENERIC: ESOMEPRAZOLE UNKNOWN
     Route: 065
     Dates: start: 2015, end: 2016
  23. SYNTHROID [Concomitant]
     Active Substance: LEVOTHYROXINE SODIUM
     Dates: start: 20080318
  24. POTASSIUM CHLORIDE. [Concomitant]
     Active Substance: POTASSIUM CHLORIDE
  25. JANUVIA [Concomitant]
     Active Substance: SITAGLIPTIN PHOSPHATE
  26. SULFAMETHOXAZOLE [Concomitant]
     Active Substance: SULFAMETHOXAZOLE
     Dosage: GENERIC: ESOMEPRAZOLE
     Route: 065
     Dates: start: 20151125, end: 2016
  27. NATEGLINIDE. [Concomitant]
     Active Substance: NATEGLINIDE
     Dosage: GENERIC: ESOMEPRAZOLE
     Route: 065
     Dates: start: 20160106, end: 2016
  28. KEFLEX [Concomitant]
     Active Substance: CEPHALEXIN
     Dosage: GENERIC: ESOMEPRAZOLE
     Route: 065
     Dates: start: 20151125, end: 2016
  29. LASIX [Concomitant]
     Active Substance: FUROSEMIDE
     Route: 048
     Dates: start: 20080318
  30. TIAZAC [Concomitant]
     Active Substance: DILTIAZEM HYDROCHLORIDE
     Indication: CARDIAC FAILURE CONGESTIVE
     Route: 048
     Dates: start: 20080318
  31. ZESTERIL [Concomitant]
     Indication: HYPERTENSION
     Dates: start: 2002, end: 2005
  32. ATORVASTATIN [Concomitant]
     Active Substance: ATORVASTATIN
     Indication: BLOOD CHOLESTEROL INCREASED
     Dates: start: 2002
  33. VITAMIN D [Concomitant]
     Active Substance: CHOLECALCIFEROL
     Dates: start: 2012
  34. TOBRADEX [Concomitant]
     Active Substance: DEXAMETHASONE\TOBRAMYCIN
  35. PLAVIX [Concomitant]
     Active Substance: CLOPIDOGREL BISULFATE
  36. RIVASTIGMINE. [Concomitant]
     Active Substance: RIVASTIGMINE
  37. RIVASTIGMINE. [Concomitant]
     Active Substance: RIVASTIGMINE
     Route: 048
     Dates: start: 2009
  38. SULFAMETHOXAZOLE [Concomitant]
     Active Substance: SULFAMETHOXAZOLE
     Route: 048
     Dates: start: 2009
  39. SULFAMETHOXAZOLE [Concomitant]
     Active Substance: SULFAMETHOXAZOLE
     Dosage: GENERIC: ESOMEPRAZOLE
     Route: 065
     Dates: start: 20160106, end: 2016
  40. COLACE [Concomitant]
     Active Substance: DOCUSATE SODIUM
     Route: 048
     Dates: start: 20151007
  41. KEFLEX [Concomitant]
     Active Substance: CEPHALEXIN
     Dosage: GENERIC: ESOMEPRAZOLE
     Route: 065
     Dates: start: 20160106, end: 2016
  42. RENVELA [Concomitant]
     Active Substance: SEVELAMER CARBONATE
     Route: 048
     Dates: start: 2009
  43. LACTULOSE. [Concomitant]
     Active Substance: LACTULOSE
     Dosage: GENERIC: ESOMEPRAZOLE
     Route: 065
     Dates: start: 20151125, end: 2016
  44. EMLA [Concomitant]
     Active Substance: LIDOCAINE\PRILOCAINE
     Route: 048
     Dates: start: 2009
  45. EMLA [Concomitant]
     Active Substance: LIDOCAINE\PRILOCAINE
     Route: 048
     Dates: start: 20151007
  46. STARLIX [Concomitant]
     Active Substance: NATEGLINIDE
     Route: 048
     Dates: start: 20080318
  47. NEXIUM [Suspect]
     Active Substance: ESOMEPRAZOLE MAGNESIUM
     Indication: GASTROOESOPHAGEAL REFLUX DISEASE
     Route: 048
     Dates: start: 2009
  48. NEXIUM [Suspect]
     Active Substance: ESOMEPRAZOLE MAGNESIUM
     Indication: GASTROOESOPHAGEAL REFLUX DISEASE
     Dosage: 40.0MG UNKNOWN
     Route: 048
     Dates: start: 20100304
  49. TOPROL XL [Concomitant]
     Active Substance: METOPROLOL SUCCINATE
  50. FOSAMAX [Concomitant]
     Active Substance: ALENDRONATE SODIUM
  51. AVELOX [Concomitant]
     Active Substance: MOXIFLOXACIN HYDROCHLORIDE
  52. LEVEMIR [Concomitant]
     Active Substance: INSULIN DETEMIR
  53. ZEMPLAR [Concomitant]
     Active Substance: PARICALCITOL
     Route: 048
     Dates: start: 20080318
  54. PARICALCITOL. [Concomitant]
     Active Substance: PARICALCITOL
  55. SPIRONOLACTONE. [Concomitant]
     Active Substance: SPIRONOLACTONE
     Route: 048
     Dates: start: 20151007
  56. SPIRONOLACTONE. [Concomitant]
     Active Substance: SPIRONOLACTONE
     Dosage: GENERIC: ESOMEPRAZOLE
     Route: 065
     Dates: start: 20160106, end: 2016
  57. RIVASTIGMINE. [Concomitant]
     Active Substance: RIVASTIGMINE
     Route: 048
     Dates: start: 20151007
  58. CRESTOR [Concomitant]
     Active Substance: ROSUVASTATIN CALCIUM
  59. COLACE [Concomitant]
     Active Substance: DOCUSATE SODIUM
     Dosage: GENERIC: ESOMEPRAZOLE
     Route: 065
     Dates: start: 20151125, end: 2016
  60. KEFLEX [Concomitant]
     Active Substance: CEPHALEXIN
     Route: 048
     Dates: start: 2009
  61. RENVELA [Concomitant]
     Active Substance: SEVELAMER CARBONATE
  62. EMLA [Concomitant]
     Active Substance: LIDOCAINE\PRILOCAINE
  63. FUROSEMIDE. [Concomitant]
     Active Substance: FUROSEMIDE
     Indication: FLUID RETENTION
     Dates: start: 2002
  64. AMARYL [Concomitant]
     Active Substance: GLIMEPIRIDE
     Indication: DIABETES MELLITUS
     Dates: start: 2002, end: 2005
  65. PROMETHAZINE [Concomitant]
     Active Substance: PROMETHAZINE\PROMETHAZINE HYDROCHLORIDE
     Indication: HYPERSENSITIVITY
     Dates: start: 2002, end: 2005
  66. FOLIC ACID. [Concomitant]
     Active Substance: FOLIC ACID
  67. PERCOCET [Concomitant]
     Active Substance: ACETAMINOPHEN\OXYCODONE HYDROCHLORIDE
  68. POLYETHYLENE GLYCOL [Concomitant]
     Active Substance: POLYETHYLENE GLYCOLS
  69. CARVEDILOL. [Concomitant]
     Active Substance: CARVEDILOL
  70. SPIRONOLACTONE. [Concomitant]
     Active Substance: SPIRONOLACTONE
     Route: 048
     Dates: start: 2009
  71. SULFAMETHOXAZOLE [Concomitant]
     Active Substance: SULFAMETHOXAZOLE
     Route: 048
     Dates: start: 20151007
  72. CRESTOR [Concomitant]
     Active Substance: ROSUVASTATIN CALCIUM
     Route: 048
     Dates: start: 2009
  73. CRESTOR [Concomitant]
     Active Substance: ROSUVASTATIN CALCIUM
     Route: 048
     Dates: start: 20151007
  74. CRESTOR [Concomitant]
     Active Substance: ROSUVASTATIN CALCIUM
     Dates: start: 20110417
  75. COLACE [Concomitant]
     Active Substance: DOCUSATE SODIUM
     Dosage: GENERIC: ESOMEPRAZOLE
     Route: 065
     Dates: start: 20160106, end: 2016
  76. RENVELA [Concomitant]
     Active Substance: SEVELAMER CARBONATE
     Route: 048
     Dates: start: 20151007
  77. ALBUTEROL. [Concomitant]
     Active Substance: ALBUTEROL
     Indication: COUGH
     Dates: start: 2006
  78. ZETIA [Concomitant]
     Active Substance: EZETIMIBE
     Dates: start: 2008
  79. MIRALAX [Concomitant]
     Active Substance: POLYETHYLENE GLYCOL 3350
     Dates: start: 2016
  80. VOLTAREN [Concomitant]
     Active Substance: DICLOFENAC SODIUM
  81. SPIRONOLACTONE. [Concomitant]
     Active Substance: SPIRONOLACTONE
  82. SPIRONOLACTONE. [Concomitant]
     Active Substance: SPIRONOLACTONE
     Dosage: GENERIC: ESOMEPRAZOLE
     Route: 065
     Dates: start: 20151125, end: 2016
  83. RIVASTIGMINE. [Concomitant]
     Active Substance: RIVASTIGMINE
     Dosage: GENERIC: ESOMEPRAZOLE
     Route: 065
     Dates: start: 20160106, end: 2016
  84. NATEGLINIDE. [Concomitant]
     Active Substance: NATEGLINIDE
     Route: 048
     Dates: start: 2009
  85. NATEGLINIDE. [Concomitant]
     Active Substance: NATEGLINIDE
     Route: 048
     Dates: start: 20151007
  86. CRESTOR [Concomitant]
     Active Substance: ROSUVASTATIN CALCIUM
     Dosage: GENERIC: ESOMEPRAZOLE
     Route: 065
     Dates: start: 20151125, end: 2016
  87. KEFLEX [Concomitant]
     Active Substance: CEPHALEXIN
     Route: 048
     Dates: start: 20151007
  88. NEXIUM [Suspect]
     Active Substance: ESOMEPRAZOLE MAGNESIUM
     Indication: GASTROOESOPHAGEAL REFLUX DISEASE
     Route: 048
     Dates: start: 2009, end: 2016
  89. NEXIUM [Suspect]
     Active Substance: ESOMEPRAZOLE MAGNESIUM
     Indication: GASTROOESOPHAGEAL REFLUX DISEASE
     Dosage: GENERIC: ESOMEPRAZOLE UNKNOWN
     Route: 065
     Dates: start: 20160106, end: 2016
  90. NEXIUM [Suspect]
     Active Substance: ESOMEPRAZOLE MAGNESIUM
     Indication: GASTROOESOPHAGEAL REFLUX DISEASE
     Dosage: 40.0MG UNKNOWN
     Route: 048
     Dates: start: 20090311
  91. TOPROL XL [Concomitant]
     Active Substance: METOPROLOL SUCCINATE
     Indication: HYPERTENSION
     Dates: start: 2002, end: 2010
  92. ASPIRIN. [Concomitant]
     Active Substance: ASPIRIN
     Dates: start: 2016
  93. BETOPTIC [Concomitant]
     Active Substance: BETAXOLOL HYDROCHLORIDE
  94. CILOXAN [Concomitant]
     Active Substance: CIPROFLOXACIN HYDROCHLORIDE
  95. ACETAMINOPHEN. [Concomitant]
     Active Substance: ACETAMINOPHEN
  96. FERREX [Concomitant]
     Active Substance: FERRIC POLYSACCHARIDE COMPLEX
  97. GLIMEPIRIDE. [Concomitant]
     Active Substance: GLIMEPIRIDE
  98. ZEMPLAR [Concomitant]
     Active Substance: PARICALCITOL
  99. RIVASTIGMINE. [Concomitant]
     Active Substance: RIVASTIGMINE
     Dosage: GENERIC: ESOMEPRAZOLE
     Route: 065
     Dates: start: 20151125, end: 2016
  100. SULFAMETHOXAZOLE [Concomitant]
     Active Substance: SULFAMETHOXAZOLE
  101. COLACE [Concomitant]
     Active Substance: DOCUSATE SODIUM
     Route: 048
     Dates: start: 2009
  102. KEFLEX [Concomitant]
     Active Substance: CEPHALEXIN
  103. RENVELA [Concomitant]
     Active Substance: SEVELAMER CARBONATE
     Dosage: GENERIC: ESOMEPRAZOLE
     Route: 065
     Dates: start: 20151125, end: 2016
  104. LACTULOSE. [Concomitant]
     Active Substance: LACTULOSE
  105. LACTULOSE. [Concomitant]
     Active Substance: LACTULOSE
     Route: 048
     Dates: start: 2009
  106. LACTULOSE. [Concomitant]
     Active Substance: LACTULOSE
     Route: 048
     Dates: start: 20151007
  107. EMLA [Concomitant]
     Active Substance: LIDOCAINE\PRILOCAINE
     Dosage: GENERIC: ESOMEPRAZOLE
     Route: 065
     Dates: start: 20151125, end: 2016
  108. EMLA [Concomitant]
     Active Substance: LIDOCAINE\PRILOCAINE
     Dosage: GENERIC: ESOMEPRAZOLE
     Route: 065
     Dates: start: 20160106, end: 2016

REACTIONS (6)
  - Renal failure [Not Recovered/Not Resolved]
  - Chronic kidney disease [Not Recovered/Not Resolved]
  - Acute kidney injury [Unknown]
  - End stage renal disease [Not Recovered/Not Resolved]
  - Hyperparathyroidism secondary [Unknown]
  - Nephrogenic anaemia [Unknown]

NARRATIVE: CASE EVENT DATE: 20040816
